FAERS Safety Report 9357700 (Version 1)
Quarter: 2013Q2

REPORT INFORMATION
  Report Type: Spontaneous
  Country: CH (occurrence: CH)
  Receive Date: 20130620
  Receipt Date: 20130620
  Transmission Date: 20140414
  Serious: Yes (Other)
  Sender: FDA-Public Use
  Company Number: CH-ELI_LILLY_AND_COMPANY-CH201306003621

PATIENT
  Sex: Male

DRUGS (4)
  1. CYMBALTA [Suspect]
     Indication: DEPRESSION
     Dosage: 30 MG, UNKNOWN
     Route: 065
     Dates: start: 201305
  2. ALLOPURINOL [Concomitant]
     Dosage: 200 MG, UNK
     Route: 065
  3. PREDNISON [Concomitant]
     Dosage: 50 MG, UNKNOWN
     Route: 065
  4. OLMESARTAN MEDOXOMIL [Concomitant]
     Dosage: 10 MG, QD
     Route: 065

REACTIONS (3)
  - Gamma-glutamyltransferase increased [Unknown]
  - Hepatitis [Unknown]
  - Gout [Unknown]
